FAERS Safety Report 24369651 (Version 1)
Quarter: 2024Q3

REPORT INFORMATION
  Report Type: Spontaneous
  Country: PL (occurrence: PL)
  Receive Date: 20240927
  Receipt Date: 20240927
  Transmission Date: 20241016
  Serious: No
  Sender: ROCHE
  Company Number: PL-ROCHE-3504155

PATIENT
  Age: 61 Year
  Sex: Male

DRUGS (4)
  1. RANIBIZUMAB [Suspect]
     Active Substance: RANIBIZUMAB
     Indication: Glaucoma
     Route: 050
  2. RANIBIZUMAB [Suspect]
     Active Substance: RANIBIZUMAB
     Indication: Retinal detachment
  3. RANIBIZUMAB [Suspect]
     Active Substance: RANIBIZUMAB
     Indication: Hyphaema
  4. RANIBIZUMAB [Suspect]
     Active Substance: RANIBIZUMAB
     Indication: Vitreous haemorrhage

REACTIONS (2)
  - Off label use [Unknown]
  - No adverse event [Unknown]
